FAERS Safety Report 11642466 (Version 5)
Quarter: 2016Q4

REPORT INFORMATION
  Report Type: Report from Study
  Country: DE (occurrence: DE)
  Receive Date: 20151019
  Receipt Date: 20161219
  Transmission Date: 20170206
  Serious: Yes (Hospitalization)
  Sender: FDA-Public Use
  Company Number: DE-ROCHE-1648089

PATIENT
  Age: 85 Year
  Sex: Male
  Weight: 92 kg

DRUGS (10)
  1. BEVACIZUMAB [Suspect]
     Active Substance: BEVACIZUMAB
     Route: 042
     Dates: start: 20161205
  2. CEFTRIAXON [Concomitant]
     Active Substance: CEFTRIAXONE
  3. INSUMAN RAPID [Concomitant]
     Active Substance: INSULIN HUMAN
     Indication: DIABETES MELLITUS
     Route: 042
  4. FOLINIC ACID [Concomitant]
     Active Substance: LEUCOVORIN
     Indication: COLORECTAL CANCER
     Dosage: DOSE: 500-800 MG (FREQUENCY: WEEKS)
     Route: 042
     Dates: start: 20150914
  5. AMLODIPIN [Concomitant]
     Active Substance: AMLODIPINE BESYLATE
     Indication: HYPERTENSION
     Route: 048
  6. AMLODIPIN [Concomitant]
     Active Substance: AMLODIPINE BESYLATE
     Route: 048
  7. METOPROLOL SUCCINATE. [Concomitant]
     Active Substance: METOPROLOL SUCCINATE
     Indication: HYPERTENSION
     Dosage: 47.5 MG ONE TABLET
     Route: 048
  8. BEVACIZUMAB [Suspect]
     Active Substance: BEVACIZUMAB
     Indication: COLORECTAL CANCER METASTATIC
     Route: 042
     Dates: start: 20150914
  9. LANTUS [Concomitant]
     Active Substance: INSULIN GLARGINE
     Indication: DIABETES MELLITUS
     Route: 042
  10. 5-FLUOROURACIL [Concomitant]
     Active Substance: FLUOROURACIL
     Indication: COLORECTAL CANCER
     Dosage: DOSE: 2600-4150 MG
     Route: 041
     Dates: start: 20150914

REACTIONS (4)
  - Acute kidney injury [Recovered/Resolved]
  - General physical health deterioration [Recovered/Resolved]
  - Dizziness [Recovered/Resolved]
  - Pyrexia [Recovered/Resolved]

NARRATIVE: CASE EVENT DATE: 20151019
